FAERS Safety Report 4942616-X (Version None)
Quarter: 2006Q1

REPORT INFORMATION
  Report Type: 
  Country: None (occurrence: None)
  Receive Date: 20060310
  Receipt Date: 20060227
  Transmission Date: 20060701
  Serious: Yes (Hospitalization, Other)
  Sender: FDA-Public Use
  Company Number: 2004094373

PATIENT
  Age: 50 Year
  Sex: Male
  Weight: 81.6475 kg

DRUGS (4)
  1. XANAX [Suspect]
     Indication: ANXIETY
     Dosage: UNKNOWN, ORAL
     Route: 048
     Dates: start: 20020101
  2. PRILOSEC [Concomitant]
  3. KLONOPIN [Concomitant]
  4. VALIUM [Concomitant]

REACTIONS (34)
  - ABDOMINAL DISTENSION [None]
  - ABDOMINAL PAIN [None]
  - ANGER [None]
  - ASTHENIA [None]
  - CONSTIPATION [None]
  - CRYING [None]
  - DEPRESSION [None]
  - DRUG DEPENDENCE [None]
  - DRUG WITHDRAWAL SYNDROME [None]
  - DRY MOUTH [None]
  - DYSPNOEA [None]
  - EUPHORIC MOOD [None]
  - FEELING ABNORMAL [None]
  - FLATULENCE [None]
  - FREQUENT BOWEL MOVEMENTS [None]
  - GASTRITIS [None]
  - GASTROOESOPHAGEAL REFLUX DISEASE [None]
  - HALLUCINATION [None]
  - INJURY [None]
  - MULTIPLE ALLERGIES [None]
  - MUSCLE ATROPHY [None]
  - NASAL SEPTUM DEVIATION [None]
  - NERVOUS SYSTEM DISORDER [None]
  - OESOPHAGEAL CARCINOMA [None]
  - ORAL INTAKE REDUCED [None]
  - PAIN [None]
  - SENSORY DISTURBANCE [None]
  - SINUS DISORDER [None]
  - SPEECH DISORDER [None]
  - SPINAL OSTEOARTHRITIS [None]
  - SUICIDAL IDEATION [None]
  - THINKING ABNORMAL [None]
  - TINNITUS [None]
  - WEIGHT DECREASED [None]
